FAERS Safety Report 5387091-9 (Version None)
Quarter: 2007Q3

REPORT INFORMATION
  Report Type: 
  Country: None (occurrence: None)
  Receive Date: 20070711
  Receipt Date: 20070702
  Transmission Date: 20080115
  Serious: Yes (Hospitalization)
  Sender: FDA-Public Use
  Company Number: 2007BI012177

PATIENT
  Age: 46 Year
  Sex: Female
  Weight: 72.5755 kg

DRUGS (4)
  1. AVONEX [Suspect]
     Indication: MULTIPLE SCLEROSIS
     Dosage: 30 UG; QW; IM
     Route: 030
     Dates: start: 19991101, end: 20030801
  2. AVONEX [Suspect]
     Indication: MULTIPLE SCLEROSIS
     Dosage: 30 UG; QW; IM
     Route: 030
     Dates: start: 20030801
  3. TYLENOL [Concomitant]
  4. LEXAPRO [Concomitant]

REACTIONS (12)
  - CHILLS [None]
  - CHOLELITHIASIS [None]
  - DEPRESSION [None]
  - DYSPEPSIA [None]
  - DYSURIA [None]
  - FATIGUE [None]
  - GASTRIC DISORDER [None]
  - HEADACHE [None]
  - INFLUENZA LIKE ILLNESS [None]
  - KIDNEY ENLARGEMENT [None]
  - PANCREAS INFECTION [None]
  - PYREXIA [None]
